FAERS Safety Report 25432253 (Version 1)
Quarter: 2025Q2

REPORT INFORMATION
  Report Type: Spontaneous
  Country: GB (occurrence: GB)
  Receive Date: 20250613
  Receipt Date: 20250613
  Transmission Date: 20250716
  Serious: Yes (Other)
  Sender: AUROBINDO
  Company Number: GB-MHRA-35711244

PATIENT

DRUGS (1)
  1. RIVAROXABAN [Suspect]
     Active Substance: RIVAROXABAN
     Indication: Thrombosis
     Route: 065
     Dates: start: 2021

REACTIONS (2)
  - Contusion [Unknown]
  - Ephelides [Unknown]

NARRATIVE: CASE EVENT DATE: 20250201
